FAERS Safety Report 4901511-2 (Version None)
Quarter: 2006Q1

REPORT INFORMATION
  Report Type: 
  Country: None (occurrence: None)
  Receive Date: 20060202
  Receipt Date: 20060127
  Transmission Date: 20060701
  Serious: Yes (Death)
  Sender: FDA-Public Use
  Company Number: 2006-BP-00631RO

PATIENT
  Age: 62 Year
  Sex: Male

DRUGS (19)
  1. PREDNISONE TAB [Suspect]
     Indication: PROSTATE CANCER
     Dosage: 10 MG DAILY, PO
     Route: 048
     Dates: start: 20050819, end: 20051125
  2. IROFLUVEN (IROFLUVEN) [Suspect]
     Indication: PROSTATE CANCER
     Dosage: 0.45MG/KG DAY 1 AND 8 OF 21D CYCLE, IV
     Route: 042
     Dates: start: 20050819, end: 20051125
  3. OYCODONE (OXYCODONE) [Concomitant]
  4. FENTANYL [Concomitant]
  5. PROPOXYPHENE W/ACETAMINOPHEN (PROPACET) [Concomitant]
  6. PROCHLORPERAZINE EDISYLATE [Concomitant]
  7. ALPRAZOLAM [Concomitant]
  8. VALSARTAN [Concomitant]
  9. HYDROCHLOROTHIAZIDE [Concomitant]
  10. INSULIN [Concomitant]
  11. IRON (IRON) [Concomitant]
  12. MULTIVITAMIN [Concomitant]
  13. SENNA (SENNA ALEXANDRINA) [Concomitant]
  14. CEFTRIAXONE [Concomitant]
  15. VANCOMYCIN [Concomitant]
  16. PENICILLIN VK (PHENOXYMETHYLPENICIILLIN POTASSIUM) [Concomitant]
  17. ACETAMINOPHEN [Concomitant]
  18. CELECOXIB (CELECOXIB) [Concomitant]
  19. NYSTATIN [Concomitant]

REACTIONS (10)
  - ABDOMINAL PAIN [None]
  - ASTHENIA [None]
  - BLOOD PRESSURE DECREASED [None]
  - COLD SWEAT [None]
  - CONFUSIONAL STATE [None]
  - DISEASE PROGRESSION [None]
  - DYSPNOEA [None]
  - HYPERHIDROSIS [None]
  - JAUNDICE [None]
  - LETHARGY [None]
